FAERS Safety Report 9041493 (Version 12)
Quarter: 2013Q3

REPORT INFORMATION
  Report Type: Report from Study
  Country: BR (occurrence: BR)
  Receive Date: 20130129
  Receipt Date: 20130718
  Transmission Date: 20140515
  Serious: Yes (Hospitalization, Other)
  Sender: FDA-Public Use
  Company Number: BR-GENZYME-CAMP-1002691

PATIENT
  Age: 45 Year
  Sex: Male
  Weight: 82.4 kg

DRUGS (6)
  1. ALEMTUZUMAB [Suspect]
     Indication: MULTIPLE SCLEROSIS
     Dosage: 12 MG, QD
     Route: 042
     Dates: start: 20100720, end: 20100722
  2. ALEMTUZUMAB [Suspect]
     Dosage: 12 MG, QD
     Route: 042
     Dates: start: 20090629, end: 20090703
  3. METHYLPREDNISOLONE [Concomitant]
     Indication: MULTIPLE SCLEROSIS
     Dosage: 1000 MG, QD
     Route: 042
     Dates: start: 20090713, end: 20090715
  4. METHYLPREDNISOLONE [Concomitant]
     Indication: MULTIPLE SCLEROSIS
     Dosage: 1000 MG, QD
     Route: 042
     Dates: start: 20100720, end: 20100722
  5. DIPIRONA [Concomitant]
     Indication: ANALGESIC THERAPY
     Dosage: UNK
  6. TORADOL [Concomitant]
     Indication: ANALGESIC THERAPY
     Dosage: UNK

REACTIONS (1)
  - Pancreatic pseudocyst [Not Recovered/Not Resolved]
